FAERS Safety Report 4687204-8 (Version None)
Quarter: 2005Q2

REPORT INFORMATION
  Report Type: 
  Country: None (occurrence: None)
  Receive Date: 20050606
  Receipt Date: 20050110
  Transmission Date: 20051028
  Serious: Yes (Other)
  Sender: FDA-Public Use
  Company Number: 2004116341

PATIENT
  Age: 16 Year
  Sex: Female

DRUGS (3)
  1. PHENYTOIN SODIUM [Suspect]
     Indication: ILL-DEFINED DISORDER
     Dosage: 210 MG (3 IN 1 D), ORAL
     Route: 048
     Dates: start: 20041214
  2. HIDANTAL (PHENYTOIN) [Suspect]
     Indication: ILL-DEFINED DISORDER
     Dosage: 10.5 ML (3.5 ML, 3 IN 1 D)
  3. PHENOBARBITAL TAB [Concomitant]

REACTIONS (2)
  - CONVULSION [None]
  - DRUG DISPENSING ERROR [None]
